FAERS Safety Report 5755759-8 (Version None)
Quarter: 2008Q2

REPORT INFORMATION
  Report Type: 
  Country: None (occurrence: None)
  Receive Date: 20080602
  Receipt Date: 20080521
  Transmission Date: 20081010
  Serious: Yes (Other)
  Sender: FDA-Public Use
  Company Number: DK-GENENTECH-261800

PATIENT
  Age: 68 Year
  Sex: Male

DRUGS (1)
  1. MABTHERA [Suspect]
     Indication: PEMPHIGUS
     Dosage: 1000 MG, Q2W
     Dates: start: 20070901, end: 20070901

REACTIONS (1)
  - POLYNEUROPATHY [None]
